FAERS Safety Report 8618247-7 (Version None)
Quarter: 2012Q3

REPORT INFORMATION
  Report Type: 
  Country: None (occurrence: None)
  Receive Date: 20120824
  Receipt Date: 20120725
  Transmission Date: 20120928
  Serious: No
  Sender: FDA-Public Use
  Company Number: US-009507513-1208USA000108

PATIENT

DRUGS (3)
  1. PRINIVIL [Suspect]
     Indication: BLOOD PRESSURE
     Dosage: UNK
     Route: 048
  2. IBUPROFEN [Suspect]
     Indication: PAIN
  3. TRAMADOL HYDROCHLORIDE [Suspect]
     Indication: PAIN

REACTIONS (1)
  - ANGIOEDEMA [None]
